FAERS Safety Report 20114283 (Version 2)
Quarter: 2022Q2

REPORT INFORMATION
  Report Type: Spontaneous
  Country: US (occurrence: US)
  Receive Date: 20211125
  Receipt Date: 20220516
  Transmission Date: 20220721
  Serious: No
  Sender: FDA-Public Use
  Company Number: US-PFIZER INC-202101246009

PATIENT
  Age: 28 Day
  Sex: Female
  Weight: 1.49 kg

DRUGS (5)
  1. ROCURONIUM BROMIDE [Suspect]
     Active Substance: ROCURONIUM BROMIDE
     Indication: Endotracheal intubation
     Dosage: 0.9 MG
  2. ROCURONIUM BROMIDE [Suspect]
     Active Substance: ROCURONIUM BROMIDE
     Dosage: UNK
  3. ROCURONIUM BROMIDE [Suspect]
     Active Substance: ROCURONIUM BROMIDE
     Dosage: 10 MG
  4. ATROPINE [Concomitant]
     Active Substance: ATROPINE
     Dosage: 0.03 MG
  5. FENTANYL [Concomitant]
     Active Substance: FENTANYL
     Dosage: 3 UG

REACTIONS (1)
  - Drug ineffective [Unknown]
